FAERS Safety Report 5001197-5 (Version None)
Quarter: 2006Q2

REPORT INFORMATION
  Report Type: 
  Country: None (occurrence: None)
  Receive Date: 20060501
  Receipt Date: 20060421
  Transmission Date: 20061013
  Serious: Yes (Other)
  Sender: FDA-Public Use
  Company Number: 2006055587

PATIENT
  Age: 68 Year
  Sex: Female
  Weight: 61.2356 kg

DRUGS (4)
  1. BEXTRA [Suspect]
     Indication: JOINT STIFFNESS
     Dosage: 10 MG (10 MG, 1 IN 1 D),
  2. BEXTRA [Suspect]
     Indication: OSTEOARTHRITIS
     Dosage: 10 MG (10 MG, 1 IN 1 D),
  3. ZETIA [Concomitant]
  4. ZYRTEC [Concomitant]

REACTIONS (1)
  - LIMB OPERATION [None]
